FAERS Safety Report 9504036 (Version 1)
Quarter: 2013Q1

REPORT INFORMATION
  Report Type: Spontaneous
  Country: US (occurrence: None)
  Receive Date: 20130225
  Receipt Date: 20130225
  Transmission Date: 20140127
  Serious: No
  Sender: FDA-Public Use
  Company Number: 366009

PATIENT
  Age: 55 Year
  Sex: Male

DRUGS (6)
  1. VICTOZA [Suspect]
     Indication: TYPE 2 DIABETES MELLITUS
     Route: 058
     Dates: start: 20121128
  2. CARVEDIOL (CARVEDILOL [Concomitant]
  3. CRESTOR (ROSUVASTATIN CALCIUM) [Concomitant]
  4. LANTUS (INSULIN GLARGINE) [Concomitant]
  5. LORATAB (LORATODAINE [Concomitant]
  6. METFORMIN (METFORMIN) [Concomitant]

REACTIONS (1)
  - Abdominal discomfort [None]
